FAERS Safety Report 19745335 (Version 3)
Quarter: 2021Q3

REPORT INFORMATION
  Report Type: Spontaneous
  Country: US (occurrence: US)
  Receive Date: 20210825
  Receipt Date: 20210922
  Transmission Date: 20211014
  Serious: No
  Sender: FDA-Public Use
  Company Number: US-TEVA-2021-US-1946672

PATIENT

DRUGS (1)
  1. LIDOCAINE ACTAVIS [Suspect]
     Active Substance: LIDOCAINE
     Dosage: 50 MG IN 1 G
     Route: 062

REACTIONS (1)
  - Drug ineffective [Unknown]
